FAERS Safety Report 9407291 (Version 8)
Quarter: 2013Q4

REPORT INFORMATION
  Report Type: Report from Study
  Country: US (occurrence: US)
  Receive Date: 20130718
  Receipt Date: 20131010
  Transmission Date: 20140711
  Serious: Yes (Hospitalization, Other)
  Sender: FDA-Public Use
  Company Number: US-SANOFI-AVENTIS-2013SA071956

PATIENT
  Age: 41 Year
  Sex: Female

DRUGS (1)
  1. AUBAGIO [Suspect]
     Indication: MULTIPLE SCLEROSIS
     Route: 065
     Dates: start: 20130326

REACTIONS (32)
  - Hernia obstructive [Not Recovered/Not Resolved]
  - Pain [Unknown]
  - Nephrolithiasis [Unknown]
  - Flank pain [Not Recovered/Not Resolved]
  - Histrionic personality disorder [Not Recovered/Not Resolved]
  - Munchausen^s syndrome [Not Recovered/Not Resolved]
  - Coronary artery disease [Unknown]
  - Cholecystitis acute [Not Recovered/Not Resolved]
  - Cold sweat [Not Recovered/Not Resolved]
  - Hyperhidrosis [Not Recovered/Not Resolved]
  - Flushing [Not Recovered/Not Resolved]
  - Nausea [Not Recovered/Not Resolved]
  - Loss of consciousness [Unknown]
  - Arrhythmia [Unknown]
  - Pain [Unknown]
  - Multiple sclerosis relapse [Unknown]
  - Myoclonus [Unknown]
  - Optic neuritis [Unknown]
  - Visual impairment [Unknown]
  - Balance disorder [Unknown]
  - Hypertension [Unknown]
  - Neuropathy peripheral [Unknown]
  - Affect lability [Unknown]
  - Tachycardia [Unknown]
  - Insomnia [Unknown]
  - Abdominal pain [Not Recovered/Not Resolved]
  - Malaise [Not Recovered/Not Resolved]
  - Dyspnoea [Unknown]
  - Skin reaction [Unknown]
  - Pruritus [Unknown]
  - Hypoaesthesia [Unknown]
  - Cough [Unknown]
